FAERS Safety Report 5465108-0 (Version None)
Quarter: 2007Q3

REPORT INFORMATION
  Report Type: 
  Country: None (occurrence: None)
  Receive Date: 20070820
  Receipt Date: 20070605
  Transmission Date: 20080115
  Serious: No
  Sender: FDA-Public Use
  Company Number: TPA2007A10260

PATIENT
  Age: 78 Year
  Sex: Female
  Weight: 62.1428 kg

DRUGS (3)
  1. ROZEREM [Suspect]
     Indication: INSOMNIA
     Dosage: 8 MG, HS, PER ORAL
     Route: 048
     Dates: start: 20070501
  2. NIFEDICAL (NIFEDIPINE) [Concomitant]
  3. ATENOLOL [Concomitant]

REACTIONS (1)
  - INITIAL INSOMNIA [None]
